FAERS Safety Report 8830669 (Version 2)
Quarter: 2012Q4

REPORT INFORMATION
  Report Type: 
  Country: US (occurrence: US)
  Receive Date: 20121009
  Receipt Date: 20121010
  Transmission Date: 20130627
  Serious: Yes (Death, Other)
  Sender: FDA-Public Use
  Company Number: US-JNJFOC-20121003334

PATIENT

DRUGS (15)
  1. DOXORUBICIN [Suspect]
     Indication: NEUROBLASTOMA
     Dosage: over 1 hour on days 1, and 2 (course 2)
     Route: 042
  2. CISPLATIN [Suspect]
     Indication: NEUROBLASTOMA
     Dosage: over 1 hour on day 1 and 5 (course 1 and 5)
     Route: 042
  3. ETOPOSIDE [Suspect]
     Indication: NEUROBLASTOMA
     Dosage: continuous infusion, 72 hours total
     Route: 042
  4. ETOPOSIDE [Suspect]
     Indication: NEUROBLASTOMA
     Dosage: over 1 h every 12 h , 6 doses, just prior to cisplatin on days 2 through 4 (course 1 and 5)
     Route: 042
  5. ETOPOSIDE [Suspect]
     Indication: NEUROBLASTOMA
     Dosage: over 1 h on days 1 to 5 (course 3)
     Route: 042
  6. VINCRISTINE [Suspect]
     Indication: NEUROBLASTOMA
     Dosage: max dose (2 mg) by IV push or 0.05 mg/kg for weight below 10 kg, on days 1, 8, and 15 (course 2)
     Route: 042
  7. CYCLOPHOSPHAMIDE [Suspect]
     Indication: NEUROBLASTOMA
     Dosage: 60 mg/kg, over 1 hour each day for 2 days
     Route: 042
  8. CYCLOPHOSPHAMIDE [Suspect]
     Indication: NEUROBLASTOMA
     Dosage: over 1 hour on days 1, and 2 (course 2)
     Route: 042
  9. IFOSFAMIDE [Suspect]
     Indication: NEUROBLASTOMA
     Dosage: over 1 hour (course 3)
     Route: 042
  10. CARBOPLATIN [Suspect]
     Indication: NEUROBLASTOMA
     Dosage: over 1 hour each day, 3 days
     Route: 042
  11. G-CSF [Suspect]
     Indication: NEUROBLASTOMA
     Dosage: 10 ug/kg/day, daily for consecutively 2 days
     Route: 042
  12. MESNA [Concomitant]
     Indication: NEUROBLASTOMA
     Dosage: 12 mg/kg at 0, 3 and 6 hours
     Route: 042
  13. MESNA [Concomitant]
     Indication: NEUROBLASTOMA
     Dosage: over 1 hour on days 5 (course 3) + Posthydration over 15 minutes at hours 4, 7, and 10 on days 1-3.
     Route: 042
  14. MESNA [Concomitant]
     Indication: NEUROBLASTOMA
     Dosage: over 1 hour on days 1, and 2 (course 2)
     Route: 042
  15. MANNITOL [Concomitant]
     Indication: NEUROBLASTOMA
     Dosage: over 1 hour on day 1 and 5 (course 1 and 5)
     Route: 042

REACTIONS (3)
  - Death [Fatal]
  - Wrong technique in drug usage process [Unknown]
  - Off label use [Unknown]
